FAERS Safety Report 17339757 (Version 3)
Quarter: 2020Q2

REPORT INFORMATION
  Report Type: Spontaneous
  Country: JP (occurrence: JP)
  Receive Date: 20200129
  Receipt Date: 20200528
  Transmission Date: 20200713
  Serious: Yes (Hospitalization, Other)
  Sender: FDA-Public Use
  Company Number: JP-PFIZER INC-2020037882

PATIENT
  Age: 63 Year
  Sex: Male

DRUGS (4)
  1. HALAVEN [Suspect]
     Active Substance: ERIBULIN MESYLATE
     Indication: SOFT TISSUE SARCOMA
     Dosage: 1.4 MG/M2, UNK
     Route: 042
     Dates: start: 20191101
  2. LYRICA [Suspect]
     Active Substance: PREGABALIN
     Dosage: UNK
  3. HALAVEN [Suspect]
     Active Substance: ERIBULIN MESYLATE
     Dosage: UNK (BIWEEKLY)
     Route: 042
     Dates: start: 20191209, end: 20191226
  4. TRAMCET [Suspect]
     Active Substance: ACETAMINOPHEN\TRAMADOL
     Dosage: UNK

REACTIONS (2)
  - Ileus [Recovered/Resolved]
  - Abdominal pain [Recovering/Resolving]

NARRATIVE: CASE EVENT DATE: 20191226
